FAERS Safety Report 6461827-8 (Version None)
Quarter: 2009Q4

REPORT INFORMATION
  Report Type: 
  Country: None (occurrence: None)
  Receive Date: 20091130
  Receipt Date: 20091119
  Transmission Date: 20100525
  Serious: Yes (Hospitalization)
  Sender: FDA-Public Use
  Company Number: US-MERCK-0910USA01555

PATIENT
  Age: 67 Year
  Sex: Female

DRUGS (16)
  1. FOSAMAX [Suspect]
     Indication: OSTEOPOROSIS
     Route: 048
     Dates: start: 20011001, end: 20090101
  2. ALENDRONATE SODIUM [Suspect]
     Route: 048
     Dates: start: 20090101, end: 20090701
  3. CALCIUM (UNSPECIFIED) AND VITAMIN D (UNSPECIFIED) [Concomitant]
     Route: 048
  4. ELAVIL [Concomitant]
     Route: 048
  5. LOTENSIN HCT [Concomitant]
     Route: 048
  6. VITAMINS (UNSPECIFIED) [Concomitant]
     Route: 048
  7. ASPIRIN [Concomitant]
     Route: 065
  8. ZOCOR [Concomitant]
     Route: 048
  9. OMEGA-3 MARINE TRIGLYCERIDES [Concomitant]
     Route: 065
  10. NIACIN [Concomitant]
     Route: 048
  11. CYANOCOBALAMIN [Concomitant]
     Route: 065
  12. DILAUDID [Concomitant]
     Route: 065
  13. VAGIFEM [Concomitant]
     Route: 067
  14. PREMARIN [Concomitant]
     Route: 067
  15. LEVOTHYROXINE SODIUM [Concomitant]
     Route: 065
  16. CHONDROITIN SULFATE SODIUM AND GLUCOSAMINE SULFATE [Concomitant]
     Route: 048

REACTIONS (13)
  - ABDOMINAL DISCOMFORT [None]
  - ANXIETY [None]
  - ARTHRALGIA [None]
  - BONE DISORDER [None]
  - DIARRHOEA [None]
  - FALL [None]
  - FEMUR FRACTURE [None]
  - GAIT DISTURBANCE [None]
  - INTRATHECAL PUMP INSERTION [None]
  - MALAISE [None]
  - NAUSEA [None]
  - PAIN IN EXTREMITY [None]
  - TENSION [None]
